FAERS Safety Report 10418738 (Version 7)
Quarter: 2015Q2

REPORT INFORMATION
  Report Type: Report from Study
  Country: US (occurrence: US)
  Receive Date: 20140829
  Receipt Date: 20150626
  Transmission Date: 20150821
  Serious: Yes (Other)
  Sender: FDA-Public Use
  Company Number: US-SA-2014SA036939

PATIENT
  Age: 67 Year
  Sex: Male

DRUGS (5)
  1. AUBAGIO [Suspect]
     Active Substance: TERIFLUNOMIDE
     Indication: MULTIPLE SCLEROSIS
     Route: 048
     Dates: start: 20140221
  2. EFFEXOR [Concomitant]
     Active Substance: VENLAFAXINE HYDROCHLORIDE
     Indication: DEPRESSION
     Dosage: 2 AM
  3. AUBAGIO [Suspect]
     Active Substance: TERIFLUNOMIDE
     Indication: MULTIPLE SCLEROSIS
     Route: 048
     Dates: start: 20140311
  4. GABAPENTIN. [Concomitant]
     Active Substance: GABAPENTIN
     Dosage: 3 HS
  5. VITAMIN D [Concomitant]
     Active Substance: CHOLECALCIFEROL
     Dosage: DOSE:1000 UNIT(S)

REACTIONS (12)
  - Sarcoidosis [Not Recovered/Not Resolved]
  - Somnolence [Unknown]
  - Urinary tract infection [Unknown]
  - Diarrhoea [Unknown]
  - Fatigue [Unknown]
  - Feeling abnormal [Unknown]
  - Dry skin [Unknown]
  - Rash erythematous [Unknown]
  - Euphoric mood [Unknown]
  - Pulmonary mass [Unknown]
  - Skin exfoliation [Unknown]
  - Rash [Unknown]

NARRATIVE: CASE EVENT DATE: 201402
